FAERS Safety Report 5442960-6 (Version None)
Quarter: 2007Q3

REPORT INFORMATION
  Report Type: 
  Country: None (occurrence: None)
  Receive Date: 20070827
  Receipt Date: 20070810
  Transmission Date: 20080115
  Serious: Yes (Life-Threatening)
  Sender: FDA-Public Use
  Company Number: HAPL-007-07-CH

PATIENT
  Age: 16 Month
  Sex: Female

DRUGS (5)
  1. ALBUMIN (HUMAN) [Suspect]
     Indication: HYPOALBUMINAEMIA
     Dosage: 24 G I.V.
     Route: 042
     Dates: start: 20070613, end: 20070613
  2. CALCITRIOL [Concomitant]
  3. ESOMEPRAZOLE (ESOMEPRAZOLE) [Concomitant]
  4. FUROSEMIDE [Concomitant]
  5. HYDROCHLOROTHIAZIDE [Concomitant]

REACTIONS (7)
  - ACCIDENTAL OVERDOSE [None]
  - DIALYSIS [None]
  - DYSPNOEA [None]
  - MEDICATION ERROR [None]
  - RENAL IMPAIRMENT [None]
  - RESPIRATORY ARREST [None]
  - RESPIRATORY DEPRESSION [None]
